FAERS Safety Report 4616402-4 (Version None)
Quarter: 2005Q1

REPORT INFORMATION
  Report Type: 
  Country: None (occurrence: None)
  Receive Date: 20050321
  Receipt Date: 20050307
  Transmission Date: 20050727
  Serious: Yes (Death, Other)
  Sender: FDA-Public Use
  Company Number: 2005042984

PATIENT
  Age: 54 Year
  Sex: Female

DRUGS (5)
  1. GABAPENTIN [Suspect]
     Indication: ILL-DEFINED DISORDER
  2. METAXALONE [Suspect]
     Indication: ILL-DEFINED DISORDER
  3. ACETAMINOPHEN [Concomitant]
  4. CITALOPRAM [Concomitant]
  5. FLURAZEPAM [Concomitant]

REACTIONS (3)
  - COMPLETED SUICIDE [None]
  - DEPRESSED LEVEL OF CONSCIOUSNESS [None]
  - DRUG TOXICITY [None]
